FAERS Safety Report 7831620-X (Version None)
Quarter: 2011Q4

REPORT INFORMATION
  Report Type: 
  Country: None (occurrence: None)
  Receive Date: 20111021
  Receipt Date: 20111019
  Transmission Date: 20120403
  Serious: Yes (Death, Other)
  Sender: FDA-Public Use
  Company Number: PHEH2006US09632

PATIENT
  Sex: Female
  Weight: 66.5 kg

DRUGS (30)
  1. REPLENS [Concomitant]
  2. EFFEXOR [Concomitant]
  3. FOLIC ACID [Concomitant]
  4. DURAGESIC-100 [Concomitant]
  5. AREDIA [Suspect]
     Indication: HYPERCALCAEMIA OF MALIGNANCY
     Dates: start: 20060101
  6. ZOMETA [Suspect]
     Indication: BREAST CANCER METASTATIC
     Dosage: 4 MG, QMO
     Route: 042
     Dates: start: 20020401, end: 20060101
  7. ELMIRON [Concomitant]
     Indication: CYSTITIS INTERSTITIAL
     Dosage: 100 MG, UNK
  8. VITAMIN B6 [Concomitant]
  9. ALEVE                              /00256202/ [Concomitant]
  10. CALCIUM CARBONATE [Concomitant]
  11. TYLENOL-500 [Concomitant]
  12. FOSAMAX [Suspect]
  13. TAMOXIFEN CITRATE [Concomitant]
     Indication: BREAST CANCER
  14. CIPRO [Concomitant]
  15. ACTONEL [Concomitant]
  16. FEMARA [Concomitant]
     Indication: BREAST CANCER
     Dosage: 2.5 MG, QD
  17. XELODA [Concomitant]
     Indication: BREAST CANCER
     Dates: start: 20050101
  18. TAXOL [Concomitant]
     Indication: BREAST CANCER
  19. VIOXX [Concomitant]
     Dosage: 25 MG, UNK
  20. ABRAXANE [Concomitant]
  21. MULTIVITAMIN [Concomitant]
  22. TRAMADOL HCL [Concomitant]
  23. PROVERA [Concomitant]
  24. ZOLOFT [Concomitant]
     Indication: DEPRESSION
  25. PAXIL [Concomitant]
     Dosage: 20 MG, UNK
  26. COMPAZINE [Concomitant]
  27. TRAZODONE HYDROCHLORIDE [Concomitant]
  28. PROTONIX [Concomitant]
  29. AREDIA [Suspect]
     Indication: METASTASES TO BONE
     Dosage: 90 MG, QMO
     Route: 042
     Dates: start: 19981204, end: 20020401
  30. ANASTROZOLE (ARMIDEX) [Concomitant]
     Dates: start: 20000801

REACTIONS (81)
  - TUBULOINTERSTITIAL NEPHRITIS [None]
  - DECREASED INTEREST [None]
  - INFLAMMATION [None]
  - EXCESSIVE GRANULATION TISSUE [None]
  - METASTASES TO LIVER [None]
  - AGEUSIA [None]
  - GASTROOESOPHAGEAL REFLUX DISEASE [None]
  - BREAST ATROPHY [None]
  - LUNG NEOPLASM MALIGNANT [None]
  - IRRITABLE BOWEL SYNDROME [None]
  - CARDIAC FLUTTER [None]
  - CONFUSIONAL STATE [None]
  - HAEMATURIA [None]
  - MOUTH ULCERATION [None]
  - BONE FORMATION INCREASED [None]
  - FRACTURE [None]
  - ORAL CANDIDIASIS [None]
  - NEOPLASM MALIGNANT [None]
  - URINARY TRACT INFECTION [None]
  - DRY EYE [None]
  - HYPOTHYROIDISM [None]
  - OSTEONECROSIS OF JAW [None]
  - ANXIETY [None]
  - OSTEOMYELITIS [None]
  - PRIMARY SEQUESTRUM [None]
  - IMPAIRED HEALING [None]
  - BONE PAIN [None]
  - SALIVARY GLAND DISORDER [None]
  - DISORIENTATION [None]
  - NASAL CONGESTION [None]
  - BONE DISORDER [None]
  - ANOSMIA [None]
  - ATELECTASIS [None]
  - RASH [None]
  - NEUTROPENIA [None]
  - ALOPECIA [None]
  - ARTERIOSCLEROSIS [None]
  - HYPOPNOEA [None]
  - VAGINAL INFECTION [None]
  - MUCOSAL INFLAMMATION [None]
  - DEATH [None]
  - GENERAL PHYSICAL HEALTH DETERIORATION [None]
  - DRY MOUTH [None]
  - DECREASED APPETITE [None]
  - HYPOTENSION [None]
  - RHINITIS ALLERGIC [None]
  - GAIT DISTURBANCE [None]
  - VISION BLURRED [None]
  - AMNESIA [None]
  - VAGINAL DISCHARGE [None]
  - GINGIVITIS [None]
  - ORAL INFECTION [None]
  - SKIN EXFOLIATION [None]
  - LEUKOPENIA [None]
  - BLADDER PAIN [None]
  - DIZZINESS [None]
  - BACTERIAL TEST POSITIVE [None]
  - DIARRHOEA [None]
  - DEHYDRATION [None]
  - DYSURIA [None]
  - LYMPHADENOPATHY MEDIASTINAL [None]
  - CONSTIPATION [None]
  - DYSPNOEA EXERTIONAL [None]
  - HAEMORRHOIDS [None]
  - FACIAL PAIN [None]
  - ABDOMINAL PAIN [None]
  - PALMAR-PLANTAR ERYTHRODYSAESTHESIA SYNDROME [None]
  - PAIN [None]
  - BURNING SENSATION [None]
  - DISEASE PROGRESSION [None]
  - TUMOUR MARKER INCREASED [None]
  - ORAL DISCOMFORT [None]
  - SKIN ATROPHY [None]
  - ANAEMIA [None]
  - UPPER RESPIRATORY TRACT INFECTION [None]
  - HEADACHE [None]
  - WEIGHT DECREASED [None]
  - TREMOR [None]
  - NAUSEA [None]
  - DYSPEPSIA [None]
  - SLEEP APNOEA SYNDROME [None]
